FAERS Safety Report 4341790-6 (Version None)
Quarter: 2004Q2

REPORT INFORMATION
  Report Type: 
  Country: None (occurrence: None)
  Receive Date: 20040416
  Receipt Date: 20040412
  Transmission Date: 20050107
  Serious: Yes (Other)
  Sender: FDA-Public Use
  Company Number: 2004UW07291

PATIENT
  Age: 48 Year
  Sex: Female

DRUGS (12)
  1. SEROQUEL [Suspect]
     Dosage: 50 MG TID PO
     Route: 048
  2. ATIVAN [Concomitant]
  3. PREVACID [Concomitant]
  4. ZOSYN [Concomitant]
  5. ALBUTEROL [Concomitant]
  6. MEPHYTON [Concomitant]
  7. NEOMYCIN [Concomitant]
  8. FOLIC ACID [Concomitant]
  9. LACTULOSE [Concomitant]
  10. NICOTINE [Concomitant]
  11. THIAMIN [Concomitant]
  12. MULTI-VITAMINS [Concomitant]

REACTIONS (1)
  - NEUTROPENIA [None]
